FAERS Safety Report 4721747-3 (Version None)
Quarter: 2005Q3

REPORT INFORMATION
  Report Type: 
  Country: None (occurrence: None)
  Receive Date: 20050721
  Receipt Date: 20050325
  Transmission Date: 20060218
  Serious: No
  Sender: FDA-Public Use
  Company Number: US-BRISTOL-MYERS SQUIBB COMPANY-12912044

PATIENT
  Sex: Female

DRUGS (3)
  1. COUMADIN [Suspect]
  2. HYDROCHLOROTHIAZIDE [Concomitant]
  3. TOPROL-XL [Concomitant]

REACTIONS (3)
  - ABDOMINAL DISTENSION [None]
  - FLATULENCE [None]
  - HYPERTONIC BLADDER [None]
